FAERS Safety Report 10659964 (Version 1)
Quarter: 2014Q4

REPORT INFORMATION
  Report Type: Spontaneous
  Country: US (occurrence: US)
  Receive Date: 20141217
  Receipt Date: 20141217
  Transmission Date: 20150529
  Serious: Yes (Other)
  Sender: FDA-Public Use
  Company Number: US-ELI_LILLY_AND_COMPANY-US201412002605

PATIENT
  Sex: Female
  Weight: 53 kg

DRUGS (7)
  1. CYMBALTA [Suspect]
     Active Substance: DULOXETINE HYDROCHLORIDE
     Indication: PRODUCT USED FOR UNKNOWN INDICATION
     Dosage: UNK, UNKNOWN
     Route: 065
  2. NEURONTIN [Suspect]
     Active Substance: GABAPENTIN
     Indication: NEURALGIA
     Dosage: 300 MG, UNKNOWN
     Route: 065
     Dates: start: 2003, end: 201409
  3. VYVANSE [Suspect]
     Active Substance: LISDEXAMFETAMINE DIMESYLATE
     Indication: PRODUCT USED FOR UNKNOWN INDICATION
     Dosage: UNK, UNKNOWN
     Route: 065
  4. NEURONTIN [Suspect]
     Active Substance: GABAPENTIN
     Dosage: 1200 MG, UNKNOWN
     Route: 065
  5. NEURONTIN [Suspect]
     Active Substance: GABAPENTIN
     Dosage: 900 MG, UNKNOWN
     Route: 065
  6. NEURONTIN [Suspect]
     Active Substance: GABAPENTIN
     Dosage: 600 MG, UNKNOWN
     Route: 065
  7. NEURONTIN [Suspect]
     Active Substance: GABAPENTIN
     Dosage: 2400 MG, UNKNOWN
     Route: 065

REACTIONS (12)
  - Amnesia [Recovered/Resolved]
  - Cognitive disorder [Unknown]
  - Depression [Unknown]
  - Feeling abnormal [Unknown]
  - Distractibility [Unknown]
  - Mood altered [Unknown]
  - Brain injury [Unknown]
  - Disturbance in attention [Unknown]
  - Hallucination, visual [Unknown]
  - Mental impairment [Unknown]
  - Confusional state [Recovered/Resolved]
  - Weight decreased [Unknown]
